FAERS Safety Report 16808705 (Version 1)
Quarter: 2019Q3

REPORT INFORMATION
  Report Type: Spontaneous
  Country: BR (occurrence: BR)
  Receive Date: 20190916
  Receipt Date: 20190916
  Transmission Date: 20191005
  Serious: Yes (Other)
  Sender: FDA-Public Use
  Company Number: BR-BAXTER-2019BAX017645

PATIENT
  Age: 59 Year
  Sex: Male
  Weight: 70 kg

DRUGS (2)
  1. SEVONESS [Suspect]
     Active Substance: SEVOFLURANE
     Indication: ANAESTHESIA PROCEDURE
     Dosage: SEVONESS 1ML/ML SOL INAL 250ML
     Route: 065
     Dates: start: 20190820, end: 20190820
  2. SEVONESS [Suspect]
     Active Substance: SEVOFLURANE
     Indication: RENAL STONE REMOVAL

REACTIONS (1)
  - Pulmonary congestion [Recovered/Resolved]

NARRATIVE: CASE EVENT DATE: 20190820
